FAERS Safety Report 16446331 (Version 2)
Quarter: 2019Q3

REPORT INFORMATION
  Report Type: Spontaneous
  Country: CZ (occurrence: CZ)
  Receive Date: 20190618
  Receipt Date: 20190705
  Transmission Date: 20191004
  Serious: Yes (Death, Other)
  Sender: FDA-Public Use
  Company Number: CZ-ELI_LILLY_AND_COMPANY-CZ201906005987

PATIENT
  Age: 23 Year
  Sex: Female

DRUGS (21)
  1. OXYCODONE HYDROCHLORIDE. [Suspect]
     Active Substance: OXYCODONE HYDROCHLORIDE
     Indication: PAIN
     Dosage: 40 MG, BID
     Route: 065
  2. BUTYLSCOPOLAMINE [Suspect]
     Active Substance: BUTYLSCOPOLAMINE
     Indication: PAIN
     Dosage: 3 DOSAGE FORM, DAILY
     Route: 065
  3. BUTYLSCOPOLAMINE [Suspect]
     Active Substance: BUTYLSCOPOLAMINE
     Indication: BREAKTHROUGH PAIN
  4. NALOXONE [Suspect]
     Active Substance: NALOXONE
     Indication: PAIN
     Dosage: 5 MG, QD
     Route: 065
  5. PACLITAXEL. [Suspect]
     Active Substance: PACLITAXEL
     Indication: METASTATIC GASTRIC CANCER
     Dosage: UNK UNK, UNKNOWN
     Route: 065
     Dates: start: 20160621
  6. FENTANYL. [Suspect]
     Active Substance: FENTANYL
     Indication: ABDOMINAL PAIN
     Dosage: 12.5 UG, UNKNOWN
     Route: 062
  7. FENTANYL. [Suspect]
     Active Substance: FENTANYL
     Indication: PAIN
     Dosage: 50 UG, 20 TIMES PER DAY
     Route: 062
  8. RAMUCIRUMAB [Suspect]
     Active Substance: RAMUCIRUMAB
     Indication: METASTATIC GASTRIC CANCER
     Dosage: UNK UNK, UNKNOWN
     Route: 065
  9. FOLINIC ACID [Suspect]
     Active Substance: LEUCOVORIN
     Indication: METASTATIC GASTRIC CANCER
     Dosage: UNK, UNKNOWN
     Route: 065
  10. FENTANYL. [Suspect]
     Active Substance: FENTANYL
     Dosage: 25 UG, UNKNOWN
     Route: 062
  11. OXYCODONE HYDROCHLORIDE. [Suspect]
     Active Substance: OXYCODONE HYDROCHLORIDE
     Dosage: 10 MG, BID
     Route: 065
  12. FLUOROURACIL. [Suspect]
     Active Substance: FLUOROURACIL
     Indication: METASTATIC GASTRIC CANCER
     Dosage: UNK, UNKNOWN
     Route: 065
  13. NALOXONE [Suspect]
     Active Substance: NALOXONE
     Dosage: 10 MG, BID
     Route: 065
  14. NALOXONE [Suspect]
     Active Substance: NALOXONE
     Dosage: 20 MG, BID
     Route: 065
  15. FENTANYL. [Suspect]
     Active Substance: FENTANYL
     Dosage: 150 UG, UNKNOWN
     Route: 062
  16. FENTANYL. [Suspect]
     Active Substance: FENTANYL
     Dosage: 133 UG, UNKNOWN
     Route: 060
  17. OXALIPLATIN. [Suspect]
     Active Substance: OXALIPLATIN
     Indication: METASTATIC GASTRIC CANCER
     Dosage: UNK UNK, UNKNOWN
     Route: 065
  18. FENTANYL. [Suspect]
     Active Substance: FENTANYL
     Dosage: UNK, UNKNOWN
     Route: 002
  19. OXYCODONE HYDROCHLORIDE. [Suspect]
     Active Substance: OXYCODONE HYDROCHLORIDE
     Dosage: 20 MG, BID
     Route: 065
  20. METAMIZOLE [Concomitant]
     Active Substance: METAMIZOLE
     Indication: PRODUCT USED FOR UNKNOWN INDICATION
     Dosage: 5 ML, UNK
     Route: 042
  21. FENTANYL. [Suspect]
     Active Substance: FENTANYL
     Dosage: 100 UG, UNKNOWN
     Route: 006

REACTIONS (8)
  - Metastatic gastric cancer [Fatal]
  - Vomiting [Fatal]
  - Hypophagia [Fatal]
  - Malignant neoplasm progression [Fatal]
  - Abdominal pain [Fatal]
  - Pain [Fatal]
  - Ascites [Fatal]
  - Nausea [Fatal]

NARRATIVE: CASE EVENT DATE: 201602
